FAERS Safety Report 17574771 (Version 7)
Quarter: 2020Q2

REPORT INFORMATION
  Report Type: Spontaneous
  Country: US (occurrence: US)
  Receive Date: 20200324
  Receipt Date: 20200626
  Transmission Date: 20200713
  Serious: Yes (Other)
  Sender: FDA-Public Use
  Company Number: US-AUROBINDO-AUR-APL-2020-014243

PATIENT
  Age: 77 Year
  Sex: Male
  Weight: 102.04 kg

DRUGS (9)
  1. ISOSORBIDE DINITRATE. [Concomitant]
     Active Substance: ISOSORBIDE DINITRATE
     Indication: PRODUCT USED FOR UNKNOWN INDICATION
     Dosage: UNK
     Route: 065
  2. LOSARTAN POTASSIUM TABLETS USP 25MG [Suspect]
     Active Substance: LOSARTAN POTASSIUM
     Dosage: 50 MILLIGRAM (REDUCED THE DOSE TO 50 MG)
     Route: 065
  3. LOSARTAN POTASSIUM TABLETS USP 25MG [Suspect]
     Active Substance: LOSARTAN POTASSIUM
     Dosage: 112.5 MG (EVENING) AND 62.5 MG (MORNING)
     Route: 065
  4. LOSARTAN POTASSIUM TABLETS USP 25MG [Suspect]
     Active Substance: LOSARTAN POTASSIUM
     Dosage: 100 MG AT NIGHT, 75 MG IN THE MORNING
     Route: 065
  5. LOSARTAN POTASSIUM TABLETS USP 25MG [Suspect]
     Active Substance: LOSARTAN POTASSIUM
     Dosage: DOSE WAS INCREASED GRADUALLY
     Route: 065
     Dates: start: 20191225
  6. LOSARTAN POTASSIUM TABLETS USP 25MG [Suspect]
     Active Substance: LOSARTAN POTASSIUM
     Indication: HYPERTENSION
     Dosage: UNK, SINCE 7 YEARS
     Route: 065
     Dates: start: 201203
  7. HYDRALAZINE [Concomitant]
     Active Substance: HYDRALAZINE HYDROCHLORIDE
     Indication: PRODUCT USED FOR UNKNOWN INDICATION
     Dosage: UNK
     Route: 065
  8. LOSARTAN POTASSIUM TABLETS USP 25MG [Suspect]
     Active Substance: LOSARTAN POTASSIUM
     Dosage: 62.5 MILLIGRAM IN THE MORNING AND 125 MG IN THE EVENING
     Route: 065
  9. LOSARTAN POTASSIUM TABLETS USP 50MG [Suspect]
     Active Substance: LOSARTAN POTASSIUM
     Indication: HYPERTENSION
     Dosage: 100 MG AT NIGHT, 75 MG IN THE MORNING
     Route: 065

REACTIONS (5)
  - Wrong technique in product usage process [Unknown]
  - Transurethral prostatectomy [Unknown]
  - Overdose [Unknown]
  - Drug ineffective [Unknown]
  - Blood pressure increased [Not Recovered/Not Resolved]

NARRATIVE: CASE EVENT DATE: 20191204
